FAERS Safety Report 15896032 (Version 1)
Quarter: 2019Q1

REPORT INFORMATION
  Report Type: Report from Study
  Country: None (occurrence: US)
  Receive Date: 20190131
  Receipt Date: 20190131
  Transmission Date: 20190417
  Serious: Yes (Hospitalization, Other)
  Sender: FDA-Public Use
  Company Number: US-ABBVIE-19K-163-2640813-00

PATIENT
  Age: 47 Year
  Sex: Female
  Weight: 119.86 kg

DRUGS (10)
  1. HUMIRA [Suspect]
     Active Substance: ADALIMUMAB
     Route: 058
     Dates: start: 201808, end: 20190105
  2. TOUJEO (NON-ABBVIE) [Concomitant]
     Indication: TYPE 2 DIABETES MELLITUS
  3. TRIAMTERENE AND HYDROCHLOROTHIAZIDE (NON-ABBVIE) [Concomitant]
     Indication: HYPERTENSION
  4. FOLIC ACID (NON-ABBVIE) [Concomitant]
     Indication: ADJUVANT THERAPY
  5. LISINOPRIL (NON-ABBVIE) [Concomitant]
     Indication: HYPERTENSION
  6. VICTOZA (NON-ABBVIE) [Concomitant]
     Indication: TYPE 2 DIABETES MELLITUS
  7. METHOTREXATE  (NON-ABBVIE) [Concomitant]
     Indication: RHEUMATOID ARTHRITIS
  8. VITAMIN D (NON-ABBVIE) [Concomitant]
     Indication: RHEUMATOID ARTHRITIS
  9. HUMIRA [Suspect]
     Active Substance: ADALIMUMAB
     Indication: RHEUMATOID ARTHRITIS
     Route: 058
     Dates: start: 2017, end: 201805
  10. SIMVASTATIN (NON-ABBVIE) [Concomitant]
     Indication: BLOOD CHOLESTEROL INCREASED

REACTIONS (7)
  - Incarcerated hernia [Recovered/Resolved]
  - Postoperative wound infection [Recovered/Resolved]
  - Cough [Recovering/Resolving]
  - Blood potassium decreased [Recovered/Resolved]
  - Post procedural discharge [Recovered/Resolved]
  - Exposure to communicable disease [Recovered/Resolved]
  - Diarrhoea [Recovered/Resolved]

NARRATIVE: CASE EVENT DATE: 201806
